FAERS Safety Report 5988524-7 (Version None)
Quarter: 2008Q4

REPORT INFORMATION
  Report Type: 
  Country: None (occurrence: None)
  Receive Date: 20081208
  Receipt Date: 20081208
  Transmission Date: 20090506
  Serious: Yes (Disabling)
  Sender: FDA-Public Use
  Company Number: None

PATIENT
  Age: 25 Year
  Sex: Male
  Weight: 81.6475 kg

DRUGS (1)
  1. CREST PRO-HEALTH MOUTHWASH CETYLPYRIDINIUM CHLORIDE 0.07% PROCTOR + GA [Suspect]
     Indication: DENTAL DISORDER PROPHYLAXIS
     Dosage: 4 TABLESPOONS TWICE DAILY PO
     Route: 048
     Dates: start: 20081120, end: 20081207

REACTIONS (1)
  - TOOTH DISCOLOURATION [None]
